FAERS Safety Report 8590477-2 (Version None)
Quarter: 2012Q3

REPORT INFORMATION
  Report Type: 
  Country: None (occurrence: None)
  Receive Date: 20120813
  Receipt Date: 20120807
  Transmission Date: 20120928
  Serious: Yes (Other)
  Sender: FDA-Public Use
  Company Number: CA-PFIZER INC-2012157819

PATIENT
  Age: 97 Year
  Sex: Female
  Weight: 40.816 kg

DRUGS (10)
  1. TRUSOPT [Concomitant]
     Indication: GLAUCOMA
     Dosage: UNK
  2. WARFARIN [Concomitant]
     Indication: TRANSIENT ISCHAEMIC ATTACK
     Dosage: 3 MG/4MG DAILY
  3. LUMIGAN [Concomitant]
     Indication: GLAUCOMA
     Dosage: UNK
  4. WARFARIN [Concomitant]
     Indication: ATRIAL FIBRILLATION
  5. TYLENOL [Concomitant]
     Indication: PAIN
     Dosage: 325 MG, AS NEEDED
  6. LYRICA [Suspect]
     Indication: NEURALGIA
     Dosage: 25 MG
  7. CRESTOR [Concomitant]
     Dosage: 5 MG, 1X/DAY
  8. LYRICA [Suspect]
     Indication: PAIN
  9. LETROZOLE [Concomitant]
     Indication: MASTECTOMY
     Dosage: UNK
     Dates: start: 20070501, end: 20120501
  10. HYDROCHLOROTHIAZIDE [Concomitant]
     Indication: HYPERTENSION
     Dosage: 25 MG, 1X/DAY
     Dates: end: 20120712

REACTIONS (3)
  - SOMNOLENCE [None]
  - AMNESIA [None]
  - UNRESPONSIVE TO STIMULI [None]
